FAERS Safety Report 4365219-7 (Version None)
Quarter: 2004Q2

REPORT INFORMATION
  Report Type: 
  Country: None (occurrence: None)
  Receive Date: 20040525
  Receipt Date: 20040324
  Transmission Date: 20050107
  Serious: No
  Sender: FDA-Public Use
  Company Number: PHEH2004US03391

PATIENT
  Age: 49 Year
  Sex: Female

DRUGS (2)
  1. ZELNORM [Suspect]
     Indication: IRRITABLE BOWEL SYNDROME
     Dosage: 6 MG, QD, ORAL
     Route: 048
     Dates: start: 20031001
  2. VITAMINS NOS (VITAMINS NOS) [Concomitant]

REACTIONS (1)
  - KERATOCONJUNCTIVITIS SICCA [None]
